FAERS Safety Report 17871003 (Version 1)
Quarter: 2020Q2

REPORT INFORMATION
  Report Type: Spontaneous
  Country: US (occurrence: US)
  Receive Date: 20200608
  Receipt Date: 20200608
  Transmission Date: 20200714
  Serious: Yes (Other)
  Sender: FDA-Public Use
  Company Number: NVSC2020US158236

PATIENT

DRUGS (6)
  1. METHADONE [Suspect]
     Active Substance: METHADONE HYDROCHLORIDE
     Indication: FOETAL EXPOSURE DURING PREGNANCY
     Dosage: 110 MG, QD (MATERNAL DOSE)
     Route: 064
  2. ALPRAZOLAM. [Suspect]
     Active Substance: ALPRAZOLAM
     Indication: FOETAL EXPOSURE DURING PREGNANCY
     Dosage: UNK
     Route: 064
  3. FENTANYL. [Suspect]
     Active Substance: FENTANYL
     Indication: FOETAL EXPOSURE DURING PREGNANCY
     Dosage: 100 UG (MATERNAL DOSE)
     Route: 064
  4. MISOPROSTOL. [Suspect]
     Active Substance: MISOPROSTOL
     Indication: FOETAL EXPOSURE DURING PREGNANCY
     Route: 064
  5. BUPIVACAINE. [Suspect]
     Active Substance: BUPIVACAINE
     Indication: FOETAL EXPOSURE DURING PREGNANCY
     Dosage: 2.5 MG (MATERNAL DOSE)
     Route: 064
  6. OXYTOCIN. [Suspect]
     Active Substance: OXYTOCIN
     Indication: FOETAL EXPOSURE DURING PREGNANCY
     Dosage: UNK
     Route: 064

REACTIONS (2)
  - Foetal exposure during pregnancy [Unknown]
  - Foetal heart rate deceleration abnormality [Unknown]
